FAERS Safety Report 6166646-8 (Version None)
Quarter: 2009Q2

REPORT INFORMATION
  Report Type: 
  Country: None (occurrence: None)
  Receive Date: 20090423
  Receipt Date: 20090423
  Transmission Date: 20091009
  Serious: Yes (Other)
  Sender: FDA-Public Use
  Company Number: None

PATIENT
  Age: 21 Year
  Sex: Male

DRUGS (5)
  1. GEODON [Suspect]
     Dosage: 20MG X1 IM
     Route: 030
     Dates: start: 20090325, end: 20090325
  2. GEODON [Suspect]
     Dosage: 20MG, 40MG 20MG AC, 40MG HS PO
     Route: 048
     Dates: start: 20090325, end: 20090327
  3. VISTARIL [Concomitant]
  4. PRAZSOIN HCL [Concomitant]
  5. TRAZODONE HCL [Concomitant]

REACTIONS (3)
  - DYSARTHRIA [None]
  - MUSCLE TWITCHING [None]
  - TONGUE OEDEMA [None]
